FAERS Safety Report 12123523 (Version 1)
Quarter: 2016Q1

REPORT INFORMATION
  Report Type: Spontaneous
  Country: US (occurrence: None)
  Receive Date: 20160226
  Receipt Date: 20160226
  Transmission Date: 20160526
  Serious: Yes (Hospitalization, Other)
  Sender: FDA-Public Use
  Company Number: None

PATIENT
  Age: 56 Year
  Sex: Female
  Weight: 106.14 kg

DRUGS (11)
  1. OMEPRAZOLE 20 MG [Suspect]
     Active Substance: OMEPRAZOLE
     Indication: GASTROOESOPHAGEAL REFLUX DISEASE
     Dosage: 1 OR 2 YRS
     Dates: start: 20130524, end: 20141205
  2. OMEPRAZOLE 20 MG [Suspect]
     Active Substance: OMEPRAZOLE
     Indication: POST-TRAUMATIC STRESS DISORDER
     Dosage: 1 OR 2 YRS
     Dates: start: 20130524, end: 20141205
  3. OMEPRAZOLE 20 MG [Suspect]
     Active Substance: OMEPRAZOLE
     Indication: SLEEP DISORDER
     Dosage: 1 OR 2 YRS
     Dates: start: 20130524, end: 20141205
  4. VANDAZOLE [Concomitant]
     Active Substance: METRONIDAZOLE
  5. FISH OIL [Concomitant]
     Active Substance: FISH OIL
  6. MIRENA [Concomitant]
     Active Substance: LEVONORGESTREL
  7. OMEPRAZOLE 20 MG [Suspect]
     Active Substance: OMEPRAZOLE
     Indication: DEPRESSION
     Dosage: 1 OR 2 YRS
     Dates: start: 20130524, end: 20141205
  8. OMEPRAZOLE 20 MG [Suspect]
     Active Substance: OMEPRAZOLE
     Indication: PRODUCT USED FOR UNKNOWN INDICATION
     Dosage: 1 OR 2 YRS
     Dates: start: 20130524, end: 20141205
  9. OMEPRAZOLE 20 MG [Suspect]
     Active Substance: OMEPRAZOLE
     Indication: RASH
     Dosage: 1 OR 2 YRS
     Dates: start: 20130524, end: 20141205
  10. EPSOM SALT [Concomitant]
     Active Substance: MAGNESIUM SULFATE
  11. METRONIDAZOLE. [Concomitant]
     Active Substance: METRONIDAZOLE

REACTIONS (7)
  - Haemorrhage [None]
  - Asthenia [None]
  - Cough [None]
  - Weight increased [None]
  - Nightmare [None]
  - Dyspnoea [None]
  - Hypoaesthesia [None]

NARRATIVE: CASE EVENT DATE: 20150101
